FAERS Safety Report 23990976 (Version 4)
Quarter: 2024Q3

REPORT INFORMATION
  Report Type: Spontaneous
  Country: JP (occurrence: None)
  Receive Date: 20240619
  Receipt Date: 20240725
  Transmission Date: 20241016
  Serious: Yes (Life-Threatening, Disabling, Other)
  Sender: ASTRAZENECA
  Company Number: 2024A137416

PATIENT
  Age: 76 Year
  Sex: Male
  Weight: 37 kg

DRUGS (15)
  1. ONDEXXYA [Suspect]
     Active Substance: ANDEXANET ALFA
     Indication: Thalamus haemorrhage
     Dosage: SEE NARRATIVE1760.0MG UNKNOWN
     Route: 042
     Dates: start: 20240326, end: 20240326
  2. XARELTO [Concomitant]
     Active Substance: RIVAROXABAN
     Indication: Atrial fibrillation
     Dosage: AFTER BREAKFAST, PRESCRIBED AT ANOTHER OUTPATIENT DEPARTMENT
     Route: 048
  3. TELMISARTAN [Concomitant]
     Active Substance: TELMISARTAN
     Dosage: AFTER BREAKFAST, PRESCRIBED AT ANOTHER OUTPATIENT DEPARTMENT
     Route: 048
  4. SPIRONOLACTONE [Concomitant]
     Active Substance: SPIRONOLACTONE
     Dosage: AFTER BREAKFAST, PRESCRIBED AT ANOTHER OUTPATIENT DEPARTMENT
     Route: 048
  5. LANSOPRAZOLE [Concomitant]
     Active Substance: LANSOPRAZOLE
     Dosage: AFTER BREAKFAST, PRESCRIBED AT ANOTHER OUTPATIENT DEPARTMENT
     Route: 048
  6. METILDIGOXIN [Concomitant]
     Active Substance: METILDIGOXIN
     Dosage: AFTER BREAKFAST, PRESCRIBED AT ANOTHER OUTPATIENT DEPARTMENT
     Route: 048
  7. FEBUXOSTAT [Concomitant]
     Active Substance: FEBUXOSTAT
     Dosage: AFTER BREAKFAST, PRESCRIBED AT ANOTHER OUTPATIENT DEPARTMENT
     Route: 048
  8. AMLODIPINE [Concomitant]
     Active Substance: AMLODIPINE BESYLATE
     Dosage: AFTER BREAKFAST, PRESCRIBED AT ANOTHER OUTPATIENT DEPARTMENT
     Route: 048
  9. JARDIANCE [Concomitant]
     Active Substance: EMPAGLIFLOZIN
     Dosage: AFTER BREAKFAST, PRESCRIBED AT ANOTHER OUTPATIENT DEPARTMENT
     Route: 048
  10. MEMANTINE HYDROCHLORIDE OD [Concomitant]
     Dosage: AFTER LUNCH, PRESCRIBED AT ANOTHER OUTPATIENT DEPARTMENT
     Route: 048
  11. LORAZEPAM [Concomitant]
     Active Substance: LORAZEPAM
     Dosage: AFTER EVENING MEAL, PRESCRIBED AT ANOTHER OUTPATIENT DEPARTMENT
     Route: 048
  12. DAYVIGO [Concomitant]
     Active Substance: LEMBOREXANT
     Dosage: BEFORE BEDTIME, PRESCRIBED AT ANOTHER OUTPATIENT DEPARTMENT
     Route: 048
  13. NICARDIPINE HYDROCHLORIDE [Concomitant]
     Active Substance: NICARDIPINE HYDROCHLORIDE
     Dosage: 3 ML/H3.0ML UNKNOWN
     Route: 042
     Dates: start: 20240326, end: 20240327
  14. ADONA [Concomitant]
     Dosage: DOSE UNKNOWN
     Dates: start: 20240326
  15. TRANSAMIN [Concomitant]
     Active Substance: TRANEXAMIC ACID
     Dosage: DOSE UNKNOWN
     Dates: start: 20240326

REACTIONS (10)
  - Cerebral infarction [Not Recovered/Not Resolved]
  - Embolic cerebral infarction [Not Recovered/Not Resolved]
  - Pneumonia aspiration [Recovering/Resolving]
  - Hypokalaemia [Recovered/Resolved]
  - Anaemia [Not Recovered/Not Resolved]
  - Occult blood positive [Unknown]
  - Large intestine polyp [Unknown]
  - Constipation [Not Recovered/Not Resolved]
  - Arthralgia [Not Recovered/Not Resolved]
  - Hyponatraemia [Not Recovered/Not Resolved]

NARRATIVE: CASE EVENT DATE: 20240326
